FAERS Safety Report 11214479 (Version 1)
Quarter: 2015Q2

REPORT INFORMATION
  Report Type: Spontaneous
  Country: US (occurrence: None)
  Receive Date: 20150622
  Receipt Date: 20150622
  Transmission Date: 20150821
  Serious: Yes (Other)
  Sender: FDA-Public Use
  Company Number: None

PATIENT
  Age: 57 Year
  Sex: Female

DRUGS (1)
  1. HARVONI [Suspect]
     Active Substance: LEDIPASVIR\SOFOSBUVIR
     Indication: CHRONIC HEPATITIS C
     Dosage: 90-400 MG  DAILY  BY MOUTH
     Route: 048
     Dates: start: 20150206

REACTIONS (3)
  - Headache [None]
  - Activities of daily living impaired [None]
  - Glossodynia [None]

NARRATIVE: CASE EVENT DATE: 201503
